FAERS Safety Report 8115958-7 (Version None)
Quarter: 2011Q4

REPORT INFORMATION
  Report Type: 
  Country: None (occurrence: None)
  Receive Date: 20111227
  Receipt Date: 20110919
  Transmission Date: 20120403
  Serious: Yes (Hospitalization, Other)
  Sender: FDA-Public Use
  Company Number: PHHY2011US40283

PATIENT
  Age: 49 Year
  Sex: Female
  Weight: 60.3 kg

DRUGS (12)
  1. XANAX [Concomitant]
  2. VITAMIN E [Concomitant]
  3. ZELLME [Concomitant]
  4. COLECALCIFEROL (COLECALCIFEROL) [Concomitant]
  5. B-COMPLEX (VITAMIN B NOS) [Concomitant]
  6. VITAMIN B12 [Concomitant]
  7. CELEXA [Concomitant]
  8. WELLBUTRIN XL [Concomitant]
  9. VISUMO [Concomitant]
  10. VITAMIN D [Concomitant]
  11. GILENYA [Suspect]
     Indication: MULTIPLE SCLEROSIS
     Dosage: 0.5 MG, QD, ORAL
     Route: 048
     Dates: start: 20110510
  12. LOVAZA [Concomitant]

REACTIONS (3)
  - FATIGUE [None]
  - BRADYCARDIA [None]
  - MEMORY IMPAIRMENT [None]
